FAERS Safety Report 9821745 (Version 6)
Quarter: 2014Q2

REPORT INFORMATION
  Report Type: Spontaneous
  Country: US (occurrence: US)
  Receive Date: 20140116
  Receipt Date: 20140501
  Transmission Date: 20141212
  Serious: Yes (Hospitalization, Other)
  Sender: FDA-Public Use
  Company Number: US-PFIZER INC-2014012466

PATIENT
  Age: 30 Year
  Sex: Male
  Weight: 96.16 kg

DRUGS (4)
  1. IBUPROFEN [Suspect]
     Indication: HEADACHE
     Route: 065
  2. CHILDREN^S TYLENOL [Suspect]
     Route: 048
     Dates: start: 20111006, end: 20111009
  3. ALCOHOL [Suspect]
     Route: 065
  4. EPHEDRA [Suspect]
     Dosage: UNK
     Route: 065

REACTIONS (16)
  - Coma hepatic [Recovered/Resolved]
  - Septic shock [Recovered/Resolved]
  - Acute hepatic failure [Recovered/Resolved]
  - Respiratory failure [Unknown]
  - Disseminated intravascular coagulation [Recovered/Resolved]
  - Lactic acidosis [Unknown]
  - Hepatorenal syndrome [Unknown]
  - Coagulopathy [Unknown]
  - Chronic hepatic failure [Unknown]
  - Pneumonia aspiration [Unknown]
  - Pancreatitis [Unknown]
  - Leukocytosis [Unknown]
  - Drug-induced liver injury [Unknown]
  - Renal failure [Unknown]
  - Asthenia [Unknown]
  - Atrial fibrillation [Unknown]
